FAERS Safety Report 24377232 (Version 1)
Quarter: 2024Q3

REPORT INFORMATION
  Report Type: Spontaneous
  Country: GB (occurrence: GB)
  Receive Date: 20240930
  Receipt Date: 20240930
  Transmission Date: 20241017
  Serious: Yes (Death, Hospitalization, Other)
  Sender: AUROBINDO
  Company Number: GB-MHRA-MED-202409171353166980-SJGRP

PATIENT
  Age: 53 Year
  Sex: Male

DRUGS (1)
  1. LAMOTRIGINE [Suspect]
     Active Substance: LAMOTRIGINE
     Indication: Alcoholic seizure
     Dosage: 25 MILLIGRAM, ONCE A DAY (25MG ONCE DAILY)
     Route: 065
     Dates: start: 20240605, end: 20240706

REACTIONS (5)
  - Toxic epidermal necrolysis [Fatal]
  - Stevens-Johnson syndrome [Unknown]
  - Unresponsive to stimuli [Unknown]
  - Rash [Unknown]
  - Pyrexia [Unknown]

NARRATIVE: CASE EVENT DATE: 20240705
